FAERS Safety Report 25516107 (Version 1)
Quarter: 2025Q3

REPORT INFORMATION
  Report Type: Spontaneous
  Country: US (occurrence: US)
  Receive Date: 20250704
  Receipt Date: 20250704
  Transmission Date: 20251020
  Serious: No
  Sender: JOHNSON AND JOHNSON
  Company Number: US-JNJFOC-20250704527

PATIENT
  Sex: Female

DRUGS (5)
  1. SPRAVATO [Suspect]
     Active Substance: ESKETAMINE
     Indication: Product used for unknown indication
     Route: 045
  2. SPRAVATO [Suspect]
     Active Substance: ESKETAMINE
     Route: 045
  3. SPRAVATO [Suspect]
     Active Substance: ESKETAMINE
     Route: 045
  4. SPRAVATO [Suspect]
     Active Substance: ESKETAMINE
     Route: 045
  5. SPRAVATO [Suspect]
     Active Substance: ESKETAMINE
     Route: 045
     Dates: start: 20250703

REACTIONS (4)
  - Somnolence [Unknown]
  - Dizziness [Recovering/Resolving]
  - Feeling abnormal [Unknown]
  - Drug resistance [Unknown]

NARRATIVE: CASE EVENT DATE: 20250703
